FAERS Safety Report 8516359-X (Version None)
Quarter: 2012Q3

REPORT INFORMATION
  Report Type: 
  Country: None (occurrence: None)
  Receive Date: 20120718
  Receipt Date: 20120709
  Transmission Date: 20120928
  Serious: Yes (Hospitalization)
  Sender: FDA-Public Use
  Company Number: US-BIOGENIDEC-2009BI025780

PATIENT
  Age: 50 Year
  Sex: Female
  Weight: 104 kg

DRUGS (4)
  1. TYSABRI [Suspect]
     Indication: MULTIPLE SCLEROSIS
     Route: 042
     Dates: start: 20080829, end: 20090708
  2. VICODIN [Concomitant]
     Indication: BACK PAIN
     Dates: start: 20030101
  3. OXYCONTIN [Concomitant]
     Indication: BACK PAIN
     Dates: start: 20030101
  4. TYSABRI [Suspect]
     Route: 042
     Dates: start: 20100318

REACTIONS (17)
  - PAIN [None]
  - DYSKINESIA [None]
  - GAIT DISTURBANCE [None]
  - PAIN IN EXTREMITY [None]
  - MUSCLE ATROPHY [None]
  - MEMORY IMPAIRMENT [None]
  - POST-TRAUMATIC HEADACHE [None]
  - ABDOMINAL ABSCESS [None]
  - OBESITY [None]
  - BLOOD MAGNESIUM DECREASED [None]
  - LUNG ABSCESS [None]
  - ASPARTATE AMINOTRANSFERASE INCREASED [None]
  - FALL [None]
  - VOMITING [None]
  - ALANINE AMINOTRANSFERASE INCREASED [None]
  - BLOOD ALKALINE PHOSPHATASE INCREASED [None]
  - NAUSEA [None]
